FAERS Safety Report 4940316-3 (Version None)
Quarter: 2006Q1

REPORT INFORMATION
  Report Type: 
  Country: None (occurrence: None)
  Receive Date: 20060310
  Receipt Date: 20060202
  Transmission Date: 20060701
  Serious: Yes (Hospitalization)
  Sender: FDA-Public Use
  Company Number: US-MERCK-0602USA01572

PATIENT
  Age: 65 Year
  Sex: Male
  Weight: 61 kg

DRUGS (4)
  1. VIOXX [Suspect]
     Indication: PAIN IN EXTREMITY
     Route: 048
     Dates: start: 20000101, end: 20010101
  2. VIOXX [Suspect]
     Route: 048
     Dates: start: 20000101, end: 20010101
  3. TYLENOL (CAPLET) [Concomitant]
     Indication: HEADACHE
     Route: 065
  4. TYLENOL (CAPLET) [Concomitant]
     Indication: PYREXIA
     Route: 065

REACTIONS (3)
  - ADVERSE EVENT [None]
  - CEREBRAL HAEMORRHAGE [None]
  - CEREBROVASCULAR ACCIDENT [None]
